FAERS Safety Report 16875858 (Version 2)
Quarter: 2024Q2

REPORT INFORMATION
  Report Type: Report from Study
  Country: US (occurrence: US)
  Receive Date: 20191002
  Receipt Date: 20240507
  Transmission Date: 20240716
  Serious: Yes (Hospitalization)
  Sender: FDA-Public Use
  Company Number: US-GW PHARMA-201909USGW3496

PATIENT
  Sex: Female
  Weight: 63.946 kg

DRUGS (3)
  1. EPIDIOLEX [Suspect]
     Active Substance: CANNABIDIOL
     Indication: Lennox-Gastaut syndrome
     Dosage: 240 MILLIGRAM, BID
     Route: 048
     Dates: start: 20190222
  2. EPIDIOLEX [Suspect]
     Active Substance: CANNABIDIOL
     Dosage: 3 ML IN THE MORNING + 5 ML IN THE EVENING, BID
     Route: 048
     Dates: start: 202207
  3. EPIDIOLEX [Suspect]
     Active Substance: CANNABIDIOL
     Dosage: 3 ML BY MOUTH IN THE MORNING AND 5 ML BY MOUTH IN THE EVENING
     Route: 048
     Dates: start: 202207

REACTIONS (3)
  - Hospitalisation [Unknown]
  - Insomnia [Not Recovered/Not Resolved]
  - Emergency care [Unknown]

NARRATIVE: CASE EVENT DATE: 20190101
